FAERS Safety Report 9103729 (Version 2)
Quarter: 2013Q3

REPORT INFORMATION
  Report Type: Report from Study
  Country: US (occurrence: US)
  Receive Date: 20130219
  Receipt Date: 20130725
  Transmission Date: 20140515
  Serious: Yes (Hospitalization)
  Sender: FDA-Public Use
  Company Number: US-SANOFI-AVENTIS-2013SA013689

PATIENT
  Age: 68 Year
  Sex: Male

DRUGS (14)
  1. DIABETA [Suspect]
     Route: 048
  2. PREDNISONE [Suspect]
     Indication: PROSTATE CANCER
     Route: 048
  3. SUNITINIB MALATE [Suspect]
     Indication: PROSTATE CANCER
     Route: 048
     Dates: start: 20120227, end: 20120422
  4. ANTINEOPLASTIC AGENTS [Suspect]
     Indication: PROSTATE CANCER
     Route: 048
     Dates: start: 20110603
  5. BENICAR [Suspect]
     Route: 048
  6. ATORVASTATIN CALCIUM [Suspect]
     Route: 048
  7. ASPIRIN [Suspect]
     Route: 048
  8. NEBIVOLOL [Suspect]
     Route: 048
  9. IMDUR [Suspect]
     Route: 048
  10. METHADONE HYDROCHLORIDE [Suspect]
     Route: 048
     Dates: start: 20110307
  11. GLYCERYL TRINITRATE [Suspect]
     Indication: CHEST PAIN
     Route: 060
  12. ALL OTHER THERAPEUTIC PRODUCTS [Suspect]
     Route: 048
  13. SENOKOT-S [Concomitant]
     Route: 048
  14. DOCUSATE SODIUM [Concomitant]
     Route: 048

REACTIONS (1)
  - Muscular weakness [Recovered/Resolved]
